FAERS Safety Report 4907264-6 (Version None)
Quarter: 2006Q1

REPORT INFORMATION
  Report Type: 
  Country: None (occurrence: None)
  Receive Date: 20060207
  Receipt Date: 20060202
  Transmission Date: 20060701
  Serious: Yes (Hospitalization)
  Sender: FDA-Public Use
  Company Number: 28518

PATIENT
  Age: 74 Year
  Sex: Male

DRUGS (3)
  1. TAMBOCOR [Suspect]
     Indication: ATRIAL FIBRILLATION
     Dosage: (150 MG, 2 IN 1 DAY(S)), ORAL
     Route: 048
     Dates: start: 19930101, end: 20051101
  2. WARFARIN SODIUM [Concomitant]
  3. LORAZEPAM [Concomitant]

REACTIONS (4)
  - CORONARY ARTERY OCCLUSION [None]
  - DRUG INEFFECTIVE [None]
  - DRUG TOXICITY [None]
  - HEART RATE INCREASED [None]
